FAERS Safety Report 13733588 (Version 3)
Quarter: 2017Q3

REPORT INFORMATION
  Report Type: Spontaneous
  Country: JP (occurrence: JP)
  Receive Date: 20170707
  Receipt Date: 20170923
  Transmission Date: 20171127
  Serious: Yes (Death, Hospitalization, Other)
  Sender: FDA-Public Use
  Company Number: JP-009507513-1705JPN003237J

PATIENT
  Age: 56 Year
  Sex: Male
  Weight: 48 kg

DRUGS (8)
  1. RECOMODULIN [Concomitant]
     Active Substance: THROMBOMODULIN ALFA
     Indication: DISSEMINATED INTRAVASCULAR COAGULATION
     Dosage: 18400 DF, QD
     Route: 051
     Dates: start: 20170607, end: 20170608
  2. SOLU-MEDROL [Concomitant]
     Active Substance: METHYLPREDNISOLONE SODIUM SUCCINATE
     Indication: ACUTE RESPIRATORY DISTRESS SYNDROME
     Dosage: 1000 MG, QD
     Route: 051
     Dates: start: 20170612, end: 20170614
  3. KEYTRUDA [Suspect]
     Active Substance: PEMBROLIZUMAB
     Indication: LUNG ADENOCARCINOMA
     Dosage: 200 MG, Q3W
     Route: 041
     Dates: start: 20170517, end: 20170616
  4. MEROPENEM. [Concomitant]
     Active Substance: MEROPENEM
     Indication: PNEUMONIA BACTERIAL
     Dosage: 1.0 G, BID
     Route: 051
     Dates: start: 20170526, end: 20170607
  5. PREDONINE [Concomitant]
     Active Substance: PREDNISOLONE
     Indication: ACUTE RESPIRATORY DISTRESS SYNDROME
     Dosage: 50 MG, QD
     Route: 051
     Dates: start: 20170614, end: 20170615
  6. TAZOPIPE [Concomitant]
     Active Substance: PIPERACILLIN SODIUM\TAZOBACTAM SODIUM
     Indication: PNEUMONIA BACTERIAL
     Dosage: 4.5 G, BID
     Route: 051
     Dates: start: 20170607, end: 20170615
  7. VANCOMYCIN [Concomitant]
     Active Substance: VANCOMYCIN
     Indication: PNEUMONIA BACTERIAL
     Dosage: 0.75 G, QD
     Route: 051
     Dates: start: 20170607, end: 20170613
  8. MAXIPIME [Concomitant]
     Active Substance: CEFEPIME HYDROCHLORIDE
     Indication: PNEUMONIA BACTERIAL
     Dosage: 2.0 G, BID
     Route: 051
     Dates: start: 20170519, end: 20170525

REACTIONS (3)
  - Death [Fatal]
  - Decreased appetite [Not Recovered/Not Resolved]
  - Hypocalcaemia [Not Recovered/Not Resolved]

NARRATIVE: CASE EVENT DATE: 20170522
